FAERS Safety Report 7788104-7 (Version None)
Quarter: 2011Q3

REPORT INFORMATION
  Report Type: 
  Country: None (occurrence: None)
  Receive Date: 20110927
  Receipt Date: 20110914
  Transmission Date: 20111222
  Serious: Yes (Other)
  Sender: FDA-Public Use
  Company Number: AUR-APL-2011-05069

PATIENT
  Age: 46 Year
  Sex: Female

DRUGS (1)
  1. FLUOXETINE [Suspect]
     Indication: MYASTHENIC SYNDROME
     Dosage: 20 MG (20 MG, 1 IN 1 D), UNKNOWN

REACTIONS (2)
  - HYPOTENSION [None]
  - LETHARGY [None]
